FAERS Safety Report 6740355-6 (Version None)
Quarter: 2010Q2

REPORT INFORMATION
  Report Type: 
  Country: None (occurrence: None)
  Receive Date: 20100521
  Receipt Date: 20100308
  Transmission Date: 20101027
  Serious: Yes (Other)
  Sender: FDA-Public Use
  Company Number: AUR-APL-2010-00071

PATIENT
  Age: 81 Year
  Sex: Male

DRUGS (8)
  1. FINASTERIDE [Suspect]
     Indication: PROSTATOMEGALY
     Dosage: 10MG, DAILY, ORAL
     Route: 048
     Dates: start: 20091101
  2. ASPIRIN [Concomitant]
  3. FUROSEMIDE 20MG [Concomitant]
  4. LANSOPRAZOLE 15MG [Concomitant]
  5. MADOPAR               TID [Concomitant]
  6. NEUPRO            8MG [Concomitant]
  7. RAMIPRIL [Concomitant]
  8. SIMVASTATIN [Concomitant]

REACTIONS (4)
  - AMNESIA [None]
  - COORDINATION ABNORMAL [None]
  - FALL [None]
  - HALLUCINATION [None]
